FAERS Safety Report 7535702-1 (Version None)
Quarter: 2011Q2

REPORT INFORMATION
  Report Type: 
  Country: None (occurrence: None)
  Receive Date: 20110609
  Receipt Date: 20110530
  Transmission Date: 20111010
  Serious: Yes (Other)
  Sender: FDA-Public Use
  Company Number: GB-KINGPHARMUSA00001-K201100669

PATIENT
  Age: 69 Year
  Sex: Female

DRUGS (3)
  1. MYCOPHENOLATE MEFETIL [Concomitant]
     Indication: IMMUNOSUPPRESSANT DRUG THERAPY
  2. SIROLIMUS [Concomitant]
     Indication: IMMUNOSUPPRESSANT DRUG THERAPY
  3. SEPTRA [Suspect]
     Indication: PNEUMOCYSTIS JIROVECI PNEUMONIA
     Dosage: 2040 MG, QID
     Route: 048

REACTIONS (7)
  - MUSCLE TWITCHING [None]
  - DISTURBANCE IN SOCIAL BEHAVIOUR [None]
  - RESTLESSNESS [None]
  - CONFUSIONAL STATE [None]
  - ACUTE PSYCHOSIS [None]
  - AGITATION [None]
  - PARANOIA [None]
